FAERS Safety Report 5236737-4 (Version None)
Quarter: 2007Q1

REPORT INFORMATION
  Report Type: 
  Country: None (occurrence: None)
  Receive Date: 20061208
  Receipt Date: 20050125
  Transmission Date: 20070707
  Serious: Yes (Other)
  Sender: FDA-Public Use
  Company Number: 2005UW01330

PATIENT
  Age: 63 Year
  Sex: Male
  Weight: 104.32 kg

DRUGS (9)
  1. CRESTOR [Suspect]
     Indication: BLOOD CHOLESTEROL INCREASED
     Dosage: 10 MG PO
     Route: 048
  2. CRESTOR [Suspect]
     Indication: BLOOD TRIGLYCERIDES INCREASED
     Dosage: 10 MG PO
     Route: 048
  3. TOPROL-XL [Concomitant]
  4. COUMADIN [Concomitant]
  5. IMDUR [Concomitant]
  6. ECOTRIN [Concomitant]
  7. K-DUR 10 [Concomitant]
  8. DEMADEX [Concomitant]
  9. NITROSTAT [Concomitant]

REACTIONS (9)
  - CONSTIPATION [None]
  - DYSPEPSIA [None]
  - DYSURIA [None]
  - ERUCTATION [None]
  - FLATULENCE [None]
  - FLUSHING [None]
  - HEADACHE [None]
  - TINNITUS [None]
  - VISION BLURRED [None]
